FAERS Safety Report 6064781-6 (Version None)
Quarter: 2009Q1

REPORT INFORMATION
  Report Type: 
  Country: None (occurrence: None)
  Receive Date: 20090204
  Receipt Date: 20090123
  Transmission Date: 20090719
  Serious: Yes (Other)
  Sender: FDA-Public Use
  Company Number: GB-PFIZER INC-2008150235

PATIENT

DRUGS (6)
  1. SUTENT [Suspect]
     Dosage: 50 MG, 1X/DAY
     Route: 048
     Dates: start: 20080729, end: 20081004
  2. ATORVASTATIN [Concomitant]
     Dosage: 10 MG, 1X/DAY
     Route: 048
  3. LISINOPRIL [Concomitant]
     Dosage: 5 MG, 1X/DAY
     Route: 048
  4. ALL OTHER THERAPEUTIC PRODUCTS [Concomitant]
     Dosage: UNK
  5. TRAMADOL [Concomitant]
     Dosage: UNK
  6. HALOPERIDOL [Concomitant]
     Dosage: UNK
     Route: 048

REACTIONS (1)
  - JAUNDICE [None]
